FAERS Safety Report 4624892-6 (Version None)
Quarter: 2005Q2

REPORT INFORMATION
  Report Type: 
  Country: None (occurrence: None)
  Receive Date: 20050325
  Receipt Date: 20050110
  Transmission Date: 20051028
  Serious: No
  Sender: FDA-Public Use
  Company Number: USA050187850

PATIENT
  Age: 77 Year
  Sex: Female
  Weight: 73 kg

DRUGS (3)
  1. FORTEO [Suspect]
     Indication: OSTEOPOROSIS
     Dosage: 20 UG/1 DAY
     Dates: start: 20040901
  2. COUMADIN [Concomitant]
  3. GLUCOPHAGE [Concomitant]

REACTIONS (3)
  - BLOOD GLUCOSE INCREASED [None]
  - FOOT FRACTURE [None]
  - PNEUMONIA [None]
